FAERS Safety Report 19584867 (Version 2)
Quarter: 2021Q3

REPORT INFORMATION
  Report Type: Report from Study
  Country: DE (occurrence: DE)
  Receive Date: 20210720
  Receipt Date: 20210914
  Transmission Date: 20211014
  Serious: Yes (Life-Threatening, Hospitalization, Other)
  Sender: FDA-Public Use
  Company Number: DE-PFIZER INC-202100909881

PATIENT
  Age: 80 Year
  Sex: Female
  Weight: 75 kg

DRUGS (10)
  1. MEKTOVI [Suspect]
     Active Substance: BINIMETINIB
     Indication: MALIGNANT MELANOMA
     Dosage: 45 MG, BID (2/DAY)
     Route: 048
     Dates: start: 20210321
  2. TORASEMID [Concomitant]
     Active Substance: TORSEMIDE
     Indication: CONCOMITANT DISEASE PROGRESSION
     Dosage: UNK
     Route: 065
  3. MEKTOVI [Suspect]
     Active Substance: BINIMETINIB
     Dosage: 45 MG, BID (2/DAY)
     Route: 048
     Dates: start: 20210505
  4. METOPROLOL. [Concomitant]
     Active Substance: METOPROLOL
     Indication: CONCOMITANT DISEASE PROGRESSION
     Dosage: UNK
     Route: 065
  5. RAMIPRIL. [Concomitant]
     Active Substance: RAMIPRIL
     Indication: CONCOMITANT DISEASE PROGRESSION
     Dosage: UNK
     Route: 065
  6. SIMVASTATIN. [Concomitant]
     Active Substance: SIMVASTATIN
     Indication: CONCOMITANT DISEASE PROGRESSION
     Dosage: UNK
     Route: 065
  7. ENOXAPARIN [Concomitant]
     Active Substance: ENOXAPARIN
     Indication: PROPHYLAXIS
     Dosage: UNK
     Route: 058
     Dates: start: 20210422
  8. AMLODIPIN [AMLODIPINE MESILATE] [Concomitant]
     Indication: CONCOMITANT DISEASE PROGRESSION
     Dosage: UNK
     Route: 065
  9. BRAFTOVI [Suspect]
     Active Substance: ENCORAFENIB
     Indication: MALIGNANT MELANOMA
     Dosage: 450 MG,PER DAY
     Route: 048
     Dates: start: 20210321, end: 20210421
  10. BRAFTOVI [Suspect]
     Active Substance: ENCORAFENIB
     Dosage: 75 MG PER DAY
     Route: 048
     Dates: start: 20210321

REACTIONS (28)
  - C-reactive protein increased [Recovered/Resolved]
  - Tri-iodothyronine decreased [Not Recovered/Not Resolved]
  - Alanine aminotransferase increased [Recovered/Resolved]
  - Embolism [Not Recovered/Not Resolved]
  - Hypokalaemia [Recovered/Resolved]
  - Blood lactate dehydrogenase increased [Not Recovered/Not Resolved]
  - Dry skin [Not Recovered/Not Resolved]
  - Vision blurred [Recovered/Resolved]
  - Cardiogenic shock [Not Recovered/Not Resolved]
  - Pulmonary infarction [Recovered/Resolved with Sequelae]
  - Rash papular [Not Recovered/Not Resolved]
  - Gamma-glutamyltransferase increased [Not Recovered/Not Resolved]
  - Constipation [Not Recovered/Not Resolved]
  - Small intestine ulcer [Recovered/Resolved]
  - Somnolence [Recovered/Resolved]
  - Monocyte count decreased [Recovered/Resolved]
  - Nausea [Recovered/Resolved]
  - Hyperglycaemia [Not Recovered/Not Resolved]
  - Aspartate aminotransferase increased [Recovered/Resolved]
  - Hyponatraemia [Recovered/Resolved]
  - Anaemia [Not Recovered/Not Resolved]
  - Embolism [Recovering/Resolving]
  - General physical health deterioration [Recovered/Resolved]
  - Confusional state [Recovered/Resolved]
  - Lymphocyte count decreased [Recovered/Resolved]
  - Cerebral haemorrhage [Recovered/Resolved]
  - Cataract [Recovered/Resolved with Sequelae]
  - Vomiting [Recovered/Resolved]

NARRATIVE: CASE EVENT DATE: 20210327
